FAERS Safety Report 16720172 (Version 1)
Quarter: 2019Q3

REPORT INFORMATION
  Report Type: Spontaneous
  Country: CN (occurrence: CN)
  Receive Date: 20190820
  Receipt Date: 20190820
  Transmission Date: 20191005
  Serious: Yes (Other)
  Sender: FDA-Public Use
  Company Number: CN-PFIZER INC-2019353314

PATIENT
  Age: 5 Decade
  Sex: Female

DRUGS (1)
  1. SUTENT [Suspect]
     Active Substance: SUNITINIB MALATE
     Indication: RENAL CELL CARCINOMA
     Dosage: 50 MG, 1X/DAY
     Dates: start: 20181001

REACTIONS (3)
  - Heart rate increased [Unknown]
  - Pericardial effusion [Unknown]
  - Palpitations [Unknown]

NARRATIVE: CASE EVENT DATE: 20190814
